FAERS Safety Report 24237948 (Version 1)
Quarter: 2024Q3

REPORT INFORMATION
  Report Type: Spontaneous
  Country: US (occurrence: None)
  Receive Date: 20240821
  Receipt Date: 20240821
  Transmission Date: 20241016
  Serious: No
  Sender: Public
  Company Number: None

PATIENT
  Age: 23 Year
  Sex: Female
  Weight: 81 kg

DRUGS (3)
  1. MONISTAT [Suspect]
     Active Substance: MICONAZOLE NITRATE
     Indication: Fungal infection
     Dates: start: 20240820, end: 20240820
  2. SPIRONOLACTONE [Concomitant]
     Active Substance: SPIRONOLACTONE
  3. MIRENA [Concomitant]
     Active Substance: LEVONORGESTREL

REACTIONS (2)
  - Vulvovaginal pain [None]
  - Vulvovaginal burning sensation [None]

NARRATIVE: CASE EVENT DATE: 20240820
